FAERS Safety Report 6881891-1 (Version None)
Quarter: 2010Q3

REPORT INFORMATION
  Report Type: 
  Country: None (occurrence: None)
  Receive Date: 20100727
  Receipt Date: 20100727
  Transmission Date: 20110219
  Serious: Yes (Other)
  Sender: FDA-Public Use
  Company Number: None

PATIENT
  Age: 52 Year
  Sex: Female
  Weight: 95.2554 kg

DRUGS (1)
  1. ACETAMINOPHEN [Suspect]
     Indication: PAIN
     Dosage: 1 TABLET PO
     Route: 048
     Dates: start: 20100718, end: 20100718

REACTIONS (3)
  - ABDOMINAL PAIN UPPER [None]
  - DIARRHOEA [None]
  - PRODUCT SUBSTITUTION ISSUE [None]
